FAERS Safety Report 23702683 (Version 1)
Quarter: 2024Q2

REPORT INFORMATION
  Report Type: Spontaneous
  Country: US (occurrence: US)
  Receive Date: 20240403
  Receipt Date: 20240403
  Transmission Date: 20240716
  Serious: Yes (Other)
  Sender: FDA-Public Use
  Company Number: US-PFIZER INC-202400076385

PATIENT
  Age: 54 Year
  Sex: Female

DRUGS (5)
  1. XELJANZ [Suspect]
     Active Substance: TOFACITINIB CITRATE
  2. IBUPROFEN [Concomitant]
     Active Substance: IBUPROFEN
  3. MODERNA COVID-19 VACCINE [Concomitant]
     Active Substance: ELASOMERAN
  4. NIACINAMIDE [Concomitant]
     Active Substance: NIACINAMIDE
  5. VITAMIN D3 [Concomitant]
     Active Substance: CHOLECALCIFEROL

REACTIONS (1)
  - Fungal infection [Unknown]
